FAERS Safety Report 11037879 (Version 2)
Quarter: 2015Q2

REPORT INFORMATION
  Report Type: Report from Study
  Country: IN (occurrence: IN)
  Receive Date: 20150416
  Receipt Date: 20150423
  Transmission Date: 20150821
  Serious: Yes (Hospitalization)
  Sender: FDA-Public Use
  Company Number: IN-BAYER-2015-135411

PATIENT
  Age: 61 Year
  Sex: Male

DRUGS (1)
  1. NEXAVAR [Suspect]
     Active Substance: SORAFENIB
     Indication: HEPATOCELLULAR CARCINOMA
     Dosage: DAILY DOSE 400 MG
     Route: 048
     Dates: start: 201411, end: 201503

REACTIONS (5)
  - Vomiting [Recovered/Resolved]
  - Feeding disorder [Recovered/Resolved]
  - Fluid intake reduced [Recovered/Resolved]
  - Abdominal distension [Recovered/Resolved]
  - Abdominal discomfort [Recovered/Resolved]

NARRATIVE: CASE EVENT DATE: 201503
